FAERS Safety Report 17418602 (Version 1)
Quarter: 2020Q1

REPORT INFORMATION
  Report Type: Spontaneous
  Country: US (occurrence: US)
  Receive Date: 20200214
  Receipt Date: 20200214
  Transmission Date: 20200409
  Serious: Yes (Other)
  Sender: FDA-Public Use
  Company Number: US-EMCURE PHARMACEUTICALS LTD-2020-EPL-0127

PATIENT
  Age: 66 Year
  Sex: Female

DRUGS (3)
  1. ALPRAZOLAM. [Suspect]
     Active Substance: ALPRAZOLAM
     Indication: PRODUCT USED FOR UNKNOWN INDICATION
     Dosage: 1 MILLIGRAM, TID
  2. LEVOTHYROXINE. [Concomitant]
     Active Substance: LEVOTHYROXINE
     Indication: HYPOTHYROIDISM
     Dosage: 137?150 MICROGRAM ALTERNATING DAY
  3. BUPROPION. [Suspect]
     Active Substance: BUPROPION
     Indication: SMOKING CESSATION THERAPY
     Dosage: 150 MILLIGRAM, DAILY

REACTIONS (3)
  - Withdrawal syndrome [Unknown]
  - Product dose omission [Unknown]
  - Seizure [Unknown]
